FAERS Safety Report 8735575 (Version 2)
Quarter: 2012Q4

REPORT INFORMATION
  Report Type: 
  Country: US (occurrence: US)
  Receive Date: 20120822
  Receipt Date: 20120919
  Transmission Date: 20130627
  Serious: No
  Sender: FDA-Public Use
  Company Number: US-PFIZER INC-2012203802

PATIENT
  Age: 63 Year
  Sex: Female
  Weight: 43.54 kg

DRUGS (3)
  1. NICOTROL NASAL SPRAY [Suspect]
     Indication: SMOKING CESSATION THERAPY
     Dosage: UNK
     Route: 055
  2. SPIRIVA [Concomitant]
     Dosage: UNK
  3. ALBUTEROL [Concomitant]
     Dosage: UNK

REACTIONS (3)
  - Expired drug administered [Unknown]
  - Incorrect dose administered [Unknown]
  - Drug intolerance [Unknown]
